FAERS Safety Report 7599602-3 (Version None)
Quarter: 2011Q3

REPORT INFORMATION
  Report Type: 
  Country: None (occurrence: None)
  Receive Date: 20110711
  Receipt Date: 20090416
  Transmission Date: 20111222
  Serious: Yes (Other)
  Sender: FDA-Public Use
  Company Number: US-BAYER-200918354NA

PATIENT
  Age: 61 Year
  Sex: Male
  Weight: 107.94 kg

DRUGS (10)
  1. FUROSEMIDE [Concomitant]
     Route: 048
  2. AMIODARONE HCL [Concomitant]
     Dosage: 150 MG, UNK
     Route: 042
     Dates: start: 20060712, end: 20060712
  3. LOPRESSOR [Concomitant]
     Route: 048
  4. TOPROL-XL [Concomitant]
     Route: 048
  5. HEPARIN [Concomitant]
     Dosage: 10 U, UNK
     Route: 042
     Dates: start: 20060712, end: 20060712
  6. TRASYLOL [Suspect]
     Indication: CORONARY ARTERY BYPASS
     Dosage: 1 ML, TEST DOSE AND 200ML LOADING DOSE
     Route: 042
     Dates: start: 20060712, end: 20060712
  7. NEXIUM [Concomitant]
     Route: 048
  8. LIPITOR [Concomitant]
     Route: 048
  9. TRICOR [Concomitant]
     Route: 048
  10. ZESTRIL [Concomitant]
     Route: 048

REACTIONS (5)
  - RENAL FAILURE ACUTE [None]
  - PAIN [None]
  - INJURY [None]
  - UNEVALUABLE EVENT [None]
  - RENAL FAILURE [None]
